FAERS Safety Report 8621282-6 (Version None)
Quarter: 2012Q3

REPORT INFORMATION
  Report Type: 
  Country: None (occurrence: None)
  Receive Date: 20120824
  Receipt Date: 20120510
  Transmission Date: 20120928
  Serious: Yes (Other)
  Sender: FDA-Public Use
  Company Number: US-FRI-1000038165

PATIENT
  Sex: Female

DRUGS (11)
  1. LUAF41156 [Suspect]
     Indication: MAJOR DEPRESSION
     Dosage: 0.5 MG
     Route: 048
     Dates: start: 20110408, end: 20110505
  2. LUAF41156 [Suspect]
     Dosage: 2 MG
     Route: 048
     Dates: start: 20110713
  3. ADVIL [Concomitant]
     Dates: start: 19900101
  4. LANTUS [Concomitant]
     Dates: start: 20111013
  5. NORCO [Concomitant]
     Dates: start: 20111013
  6. HUMALOG [Concomitant]
     Dates: start: 20111013
  7. LUAF41156 [Suspect]
     Dosage: 1 MG
     Route: 048
     Dates: start: 20110506, end: 20110712
  8. LIPITOR [Concomitant]
     Dates: start: 20100901
  9. LEXAPRO [Suspect]
     Indication: MAJOR DEPRESSION
     Dosage: 20 MG
     Route: 048
     Dates: start: 20110407
  10. CALCIUM CARBONATE [Concomitant]
     Dates: start: 20060101
  11. LISINOPRIL [Concomitant]
     Dates: start: 20111013

REACTIONS (1)
  - DIABETIC KETOACIDOSIS [None]
